FAERS Safety Report 25998004 (Version 1)
Quarter: 2025Q4

REPORT INFORMATION
  Report Type: Spontaneous
  Country: US (occurrence: US)
  Receive Date: 20251105
  Receipt Date: 20251105
  Transmission Date: 20260117
  Serious: Yes (Life-Threatening, Hospitalization, Other)
  Sender: AUROBINDO
  Company Number: US-MLMSERVICE-20251015-PI677446-00278-1

PATIENT
  Age: 64 Year
  Sex: Female

DRUGS (6)
  1. RAMIPRIL [Suspect]
     Active Substance: RAMIPRIL
     Indication: Product used for unknown indication
     Dosage: 600 MILLIGRAM (INGESTING UP TO 600 MG OF RAMIPRIL)
     Route: 048
  2. EPINEPHRINE [Concomitant]
     Active Substance: EPINEPHRINE
     Indication: Product used for unknown indication
     Dosage: UNK (0.22 MCG/KG/MIN)
     Route: 065
  3. EPINEPHRINE [Concomitant]
     Active Substance: EPINEPHRINE
     Dosage: UNK (2 MCG/KG/MIN)
     Route: 065
  4. NOREPINEPHRINE [Concomitant]
     Active Substance: NOREPINEPHRINE
     Indication: Product used for unknown indication
     Dosage: UNK (2 MCG/KG/MIN)
     Route: 065
  5. METHYLENE BLUE [Concomitant]
     Active Substance: METHYLENE BLUE
     Indication: Product used for unknown indication
     Dosage: 2 MILLIGRAM/KILOGRAM
     Route: 042
  6. PHENYLEPHRINE [Concomitant]
     Active Substance: PHENYLEPHRINE
     Indication: Product used for unknown indication
     Dosage: UNK (6 MCG/KG/MIN)
     Route: 065

REACTIONS (7)
  - Shock [Recovering/Resolving]
  - Distributive shock [Recovering/Resolving]
  - Acute kidney injury [Not Recovered/Not Resolved]
  - Pneumatosis intestinalis [Unknown]
  - Liver injury [Recovering/Resolving]
  - Blood lactic acid increased [Recovering/Resolving]
  - Intentional overdose [Unknown]
